FAERS Safety Report 6697567-X (Version None)
Quarter: 2010Q2

REPORT INFORMATION
  Report Type: 
  Country: None (occurrence: None)
  Receive Date: 20100426
  Receipt Date: 20090604
  Transmission Date: 20101027
  Serious: No
  Sender: FDA-Public Use
  Company Number: US-ABBOTT-09P-163-0578275-00

PATIENT
  Sex: Female
  Weight: 72.64 kg

DRUGS (7)
  1. AZMACORT [Suspect]
     Indication: ASTHMA
     Dosage: 2 PUFFS BID
  2. NASACORT [Concomitant]
     Indication: DRUG USE FOR UNKNOWN INDICATION
  3. ALBUTEROL [Concomitant]
     Indication: DRUG USE FOR UNKNOWN INDICATION
     Route: 055
  4. COZAAR [Concomitant]
     Indication: BLOOD PRESSURE
  5. M.V.I. [Concomitant]
     Indication: DRUG USE FOR UNKNOWN INDICATION
  6. CALCIUM CITRATE [Concomitant]
     Indication: DRUG USE FOR UNKNOWN INDICATION
  7. ASPIRIN [Concomitant]
     Indication: ARTHRITIS

REACTIONS (2)
  - DRUG DOSE OMISSION [None]
  - DYSPNOEA [None]
